FAERS Safety Report 9805532 (Version 1)
Quarter: 2014Q1

REPORT INFORMATION
  Report Type: Spontaneous
  Country: US (occurrence: US)
  Receive Date: 20140109
  Receipt Date: 20140109
  Transmission Date: 20141002
  Serious: Yes (Hospitalization)
  Sender: FDA-Public Use
  Company Number: US-ASTELLAS-2014US000095

PATIENT
  Age: 48 Year
  Sex: Male

DRUGS (1)
  1. PROGRAF [Suspect]
     Indication: RENAL TRANSPLANT
     Dosage: 1MG IN THE AM AND 1.5 MG IN THE PM
     Route: 048
     Dates: start: 20111106, end: 20140103

REACTIONS (1)
  - Investigation [Not Recovered/Not Resolved]
